FAERS Safety Report 5761711-9 (Version None)
Quarter: 2008Q2

REPORT INFORMATION
  Report Type: 
  Country: None (occurrence: None)
  Receive Date: 20080606
  Receipt Date: 20080527
  Transmission Date: 20081010
  Serious: Yes (Other)
  Sender: FDA-Public Use
  Company Number: US-PFIZER INC-2008038916

PATIENT
  Age: 59 Year
  Sex: Female
  Weight: 64 kg

DRUGS (1)
  1. SUTENT [Suspect]
     Indication: RENAL CELL CARCINOMA
     Route: 048
     Dates: start: 20060401, end: 20071201

REACTIONS (5)
  - ABDOMINAL PAIN [None]
  - DISEASE PROGRESSION [None]
  - DRUG TOXICITY [None]
  - INTESTINAL PERFORATION [None]
  - PNEUMATOSIS INTESTINALIS [None]
